FAERS Safety Report 4965931-2 (Version None)
Quarter: 2006Q2

REPORT INFORMATION
  Report Type: 
  Country: None (occurrence: None)
  Receive Date: 20060406
  Receipt Date: 20060406
  Transmission Date: 20061013
  Serious: Yes (Death)
  Sender: FDA-Public Use
  Company Number: None

PATIENT
  Sex: Male
  Weight: 75.7507 kg

DRUGS (10)
  1. LITHOBID [Suspect]
     Dosage: 300 MG -2AM, 1 NOON, 2 HS PO
     Route: 048
     Dates: start: 19911014, end: 20051111
  2. HALDOL [Concomitant]
  3. ZYPREXA [Concomitant]
  4. PROZAC [Concomitant]
  5. COGENTIN [Concomitant]
  6. ATIVAN [Concomitant]
  7. BENADRYL [Concomitant]
  8. CRESTOR [Concomitant]
  9. ABILIFY [Concomitant]
  10. ANTARA [Concomitant]

REACTIONS (1)
  - THERAPEUTIC AGENT TOXICITY [None]
